FAERS Safety Report 19004910 (Version 1)
Quarter: 2021Q1

REPORT INFORMATION
  Report Type: Spontaneous
  Country: DE (occurrence: DE)
  Receive Date: 20210312
  Receipt Date: 20210312
  Transmission Date: 20210420
  Serious: Yes (Death)
  Sender: FDA-Public Use
  Company Number: DE-CELGENEUS-DEU-20210303096

PATIENT
  Age: 68 Year
  Sex: Male

DRUGS (13)
  1. VENETOCLAX. [Concomitant]
     Active Substance: VENETOCLAX
     Indication: MYELODYSPLASTIC SYNDROME
     Dosage: 400 MILLIGRAM
     Route: 048
     Dates: start: 20201109, end: 20201122
  2. VENETOCLAX. [Concomitant]
     Active Substance: VENETOCLAX
     Dosage: 100 MILLIGRAM
     Route: 048
     Dates: start: 20201207, end: 20201215
  3. FOLSAN [Concomitant]
     Active Substance: FOLIC ACID
     Indication: FOLATE DEFICIENCY
     Dosage: 20 MILLIGRAM
     Route: 048
     Dates: start: 20201013
  4. VENETOCLAX. [Concomitant]
     Active Substance: VENETOCLAX
     Dosage: 50 MILLIGRAM
     Route: 048
     Dates: start: 20201216, end: 20201221
  5. MAGNESIUM [Concomitant]
     Active Substance: MAGNESIUM
     Indication: HYPERTENSIVE HEART DISEASE
     Route: 048
     Dates: start: 20201013
  6. CEFUROXIME. [Concomitant]
     Active Substance: CEFUROXIME
     Indication: INFECTION PROPHYLAXIS
     Dosage: 1000 MILLIGRAM
     Route: 048
     Dates: start: 20201130
  7. POSACONAZOL [Concomitant]
     Active Substance: POSACONAZOLE
     Indication: NEUTROPENIA
     Dosage: 300 MILLIGRAM
     Route: 048
     Dates: start: 20201215
  8. ALLOPURINOL. [Concomitant]
     Active Substance: ALLOPURINOL
     Indication: PROPHYLAXIS
  9. CEFUROXIME. [Concomitant]
     Active Substance: CEFUROXIME
     Indication: C-REACTIVE PROTEIN INCREASED
     Dosage: 1000 MILLIGRAM
     Route: 048
     Dates: start: 20201104, end: 20201108
  10. GRANISETRON [Concomitant]
     Active Substance: GRANISETRON
     Indication: PROPHYLAXIS OF NAUSEA AND VOMITING
     Dosage: BEFORE EACH AZA INFUSION (2 MG)
     Route: 041
     Dates: start: 20201109
  11. AZACITIDINE. [Suspect]
     Active Substance: AZACITIDINE
     Indication: MYELODYSPLASTIC SYNDROME
     Route: 058
     Dates: start: 20201109, end: 20201215
  12. ALLOPURINOL. [Concomitant]
     Active Substance: ALLOPURINOL
     Indication: PROPHYLAXIS
     Dosage: 300 MILLIGRAM
     Route: 048
     Dates: start: 20201110
  13. PROCORALAN [Concomitant]
     Active Substance: IVABRADINE
     Indication: HYPERTENSIVE HEART DISEASE
     Dosage: 5 MILLIGRAM
     Route: 048
     Dates: start: 20201013

REACTIONS (1)
  - Haemorrhage intracranial [Fatal]

NARRATIVE: CASE EVENT DATE: 20210222
